FAERS Safety Report 8037906-0 (Version None)
Quarter: 2012Q1

REPORT INFORMATION
  Report Type: 
  Country: None (occurrence: None)
  Receive Date: 20120111
  Receipt Date: 20120109
  Transmission Date: 20120608
  Serious: Yes (Other)
  Sender: FDA-Public Use
  Company Number: AU-ABBOTT-11P-008-0881114-00

PATIENT
  Sex: Male
  Weight: 110 kg

DRUGS (1)
  1. HUMIRA [Suspect]
     Indication: PSORIASIS
     Dates: start: 20101018, end: 20111116

REACTIONS (6)
  - DYSPNOEA EXERTIONAL [None]
  - DRUG HYPERSENSITIVITY [None]
  - ARRHYTHMIA [None]
  - MALAISE [None]
  - ATRIAL FIBRILLATION [None]
  - LOWER RESPIRATORY TRACT INFECTION [None]
